FAERS Safety Report 6124457-3 (Version None)
Quarter: 2009Q1

REPORT INFORMATION
  Report Type: 
  Country: None (occurrence: None)
  Receive Date: 20090317
  Receipt Date: 20090317
  Transmission Date: 20090719
  Serious: Yes (Hospitalization)
  Sender: FDA-Public Use
  Company Number: None

PATIENT
  Age: 2 Day
  Sex: Male
  Weight: 2 kg

DRUGS (1)
  1. POLYVISOL ENFAMIL [Suspect]
     Indication: VITAMIN D
     Dosage: 1ML QDAY PO
     Route: 048
     Dates: start: 20090305, end: 20090309

REACTIONS (3)
  - OXYGEN SATURATION DECREASED [None]
  - RETCHING [None]
  - SKIN DISCOLOURATION [None]
